FAERS Safety Report 5675030-2 (Version None)
Quarter: 2008Q1

REPORT INFORMATION
  Report Type: 
  Country: None (occurrence: None)
  Receive Date: 20080320
  Receipt Date: 20080318
  Transmission Date: 20080703
  Serious: Yes (Other)
  Sender: FDA-Public Use
  Company Number: PHHY2008BR03320

PATIENT
  Age: 34 Year
  Sex: Female
  Weight: 52 kg

DRUGS (4)
  1. TRILEPTAL [Suspect]
     Indication: EPILEPSY
     Dosage: 300 MG, BID
     Dates: start: 20010101
  2. RIVOTRIL [Concomitant]
     Indication: PANIC DISORDER
     Dosage: 0.5 TABLET/DAY
     Route: 048
     Dates: start: 20040101
  3. NORDETTE-21 [Concomitant]
     Dosage: UNK, QD
     Route: 048
     Dates: start: 20050101
  4. DIPYRONE [Concomitant]
     Indication: HEADACHE

REACTIONS (12)
  - ABNORMAL BEHAVIOUR [None]
  - ABORTION SPONTANEOUS [None]
  - ANXIETY [None]
  - CONVULSION [None]
  - DEPRESSION [None]
  - DYSPNOEA [None]
  - FOETAL MALFORMATION [None]
  - HEADACHE [None]
  - NAUSEA [None]
  - PANIC DISORDER [None]
  - SOMNOLENCE [None]
  - SURGERY [None]
